FAERS Safety Report 6981251-9 (Version None)
Quarter: 2010Q3

REPORT INFORMATION
  Report Type: 
  Country: None (occurrence: None)
  Receive Date: 20100914
  Receipt Date: 20100901
  Transmission Date: 20110219
  Serious: Yes (Death)
  Sender: FDA-Public Use
  Company Number: JP-ABBOTT-10P-087-0670175-00

PATIENT
  Age: 68 Year
  Sex: Male

DRUGS (7)
  1. LEUPROLIDE ACETATE [Suspect]
     Indication: PROSTATE CANCER STAGE IV
     Route: 058
     Dates: start: 20071214, end: 20080528
  2. BICALUTAMIDE [Concomitant]
     Indication: PROSTATE CANCER STAGE IV
     Route: 048
     Dates: start: 20071214, end: 20080810
  3. ZOMETA [Concomitant]
     Indication: PROSTATE CANCER STAGE IV
     Route: 042
     Dates: start: 20071214, end: 20080724
  4. GLYBURIDE [Concomitant]
     Indication: DIABETES MELLITUS
     Route: 048
     Dates: end: 20080810
  5. GASTER D [Concomitant]
     Indication: GASTRIC ULCER
     Route: 048
     Dates: end: 20080810
  6. OXYCONTIN [Concomitant]
     Indication: PROSTATE CANCER STAGE IV
     Route: 048
     Dates: start: 20080707, end: 20080805
  7. FENTANYL CITRATE [Concomitant]
     Indication: PROSTATE CANCER STAGE IV
     Route: 062
     Dates: start: 20080806, end: 20080813

REACTIONS (3)
  - ENTEROCOLITIS VIRAL [None]
  - HYPOCALCAEMIA [None]
  - PROSTATE CANCER STAGE IV [None]
